FAERS Safety Report 24109244 (Version 2)
Quarter: 2024Q3

REPORT INFORMATION
  Report Type: Spontaneous
  Country: GB (occurrence: GB)
  Receive Date: 20240718
  Receipt Date: 20240728
  Transmission Date: 20241016
  Serious: Yes (Hospitalization, Other)
  Sender: DR REDDYS
  Company Number: None

PATIENT
  Age: 6 Year
  Sex: Female

DRUGS (3)
  1. OMEPRAZOLE [Suspect]
     Active Substance: OMEPRAZOLE
     Indication: Gastrointestinal disorder prophylaxis
     Dosage: UNK
  2. METHYLPREDNISOLONE [Concomitant]
     Active Substance: METHYLPREDNISOLONE
     Indication: Acute disseminated encephalomyelitis
     Dosage: AGGRESSIVELY IMMUNOMODULATED
     Route: 042
  3. IMMUNOGLOBULIN [Concomitant]
     Indication: Acute disseminated encephalomyelitis
     Dosage: AGGRESSIVELY IMMUNOMODULATED?I.V.
     Route: 042

REACTIONS (6)
  - Psychotic disorder [Recovered/Resolved]
  - Negativism [Recovered/Resolved]
  - Paranoia [Recovered/Resolved]
  - Substance-induced psychotic disorder [Recovered/Resolved]
  - Agitation [Recovered/Resolved]
  - Hallucinations, mixed [Recovered/Resolved]
